FAERS Safety Report 7859989-0 (Version None)
Quarter: 2011Q4

REPORT INFORMATION
  Report Type: 
  Country: None (occurrence: None)
  Receive Date: 20111026
  Receipt Date: 20111026
  Transmission Date: 20120403
  Serious: Yes (Hospitalization)
  Sender: FDA-Public Use
  Company Number: None

PATIENT
  Age: 63 Year
  Sex: Female

DRUGS (13)
  1. MAGENESIUM OXIDE [Concomitant]
  2. REVLIMID [Suspect]
     Indication: MULTIPLE MYELOMA
     Dosage: 10MG QDX21D/28D ORALLY
     Route: 048
  3. ACYCLOVIR [Concomitant]
  4. TOLINASE [Concomitant]
  5. NORVASC [Concomitant]
  6. PRILOSEC [Concomitant]
  7. METFORMIN HCL [Concomitant]
  8. DECADRON [Concomitant]
  9. ACYCLOVIR [Concomitant]
  10. PERCOCET [Concomitant]
  11. PRINZIDE [Concomitant]
  12. VELCADE [Concomitant]
  13. ASPIRIN [Concomitant]

REACTIONS (2)
  - LACTIC ACIDOSIS [None]
  - PNEUMONIA [None]
